FAERS Safety Report 6101110-3 (Version None)
Quarter: 2009Q1

REPORT INFORMATION
  Report Type: 
  Country: None (occurrence: None)
  Receive Date: 20090304
  Receipt Date: 20090224
  Transmission Date: 20090719
  Serious: Yes (Other)
  Sender: FDA-Public Use
  Company Number: US-ASTRAZENECA-2009UW05191

PATIENT
  Age: 67 Year
  Sex: Female
  Weight: 61.2 kg

DRUGS (5)
  1. TOPROL-XL [Suspect]
     Indication: ARRHYTHMIA
     Route: 048
  2. TOPROL-XL [Suspect]
     Indication: HYPERTENSION
     Route: 048
  3. TOPROL-XL [Suspect]
     Route: 048
  4. TOPROL-XL [Suspect]
     Route: 048
  5. METOPROLOL TARTRATE [Concomitant]

REACTIONS (2)
  - CARDIAC PACEMAKER INSERTION [None]
  - FATIGUE [None]
